FAERS Safety Report 8979220 (Version 2)
Quarter: 2013Q2

REPORT INFORMATION
  Report Type: Spontaneous
  Country: FR (occurrence: FR)
  Receive Date: 20121221
  Receipt Date: 20130408
  Transmission Date: 20140414
  Serious: Yes (Hospitalization)
  Sender: FDA-Public Use
  Company Number: FR-GLAXOSMITHKLINE-B0853915A

PATIENT
  Age: 76 Year
  Sex: Female
  Weight: 64.3 kg

DRUGS (9)
  1. ARIXTRA [Suspect]
     Indication: DEEP VEIN THROMBOSIS
     Dosage: 7.5MG PER DAY
     Route: 058
     Dates: start: 20121109, end: 20121114
  2. LOVENOX [Suspect]
     Indication: THROMBOPHLEBITIS
     Dosage: 4000IU PER DAY
     Route: 058
     Dates: start: 20121116, end: 20121119
  3. TEGRETOL [Concomitant]
     Dosage: 2TAB PER DAY
     Route: 048
  4. TANGANIL [Concomitant]
  5. HYTACAND [Concomitant]
     Dosage: 3TAB PER DAY
     Route: 048
  6. GINKOR [Concomitant]
     Route: 048
  7. TANAKAN [Concomitant]
  8. DAFALGAN CODEINE [Concomitant]
  9. ANTIBIOTIC [Concomitant]
     Indication: ERYSIPELAS

REACTIONS (9)
  - Haematoma [Unknown]
  - Haemorrhagic anaemia [Recovering/Resolving]
  - Renal failure acute [Recovered/Resolved]
  - Gastric ulcer haemorrhage [Recovering/Resolving]
  - Overdose [Unknown]
  - Blood pressure systolic increased [None]
  - White blood cell count increased [None]
  - Neutrophil percentage increased [None]
  - Helicobacter infection [None]
